FAERS Safety Report 5062634-3 (Version None)
Quarter: 2006Q3

REPORT INFORMATION
  Report Type: 
  Country: None (occurrence: None)
  Receive Date: 20060724
  Receipt Date: 20060706
  Transmission Date: 20061208
  Serious: Yes (Hospitalization)
  Sender: FDA-Public Use
  Company Number: 2006RR-02776

PATIENT
  Age: 7 Year
  Sex: Female

DRUGS (2)
  1. AMOXICILLIN + CLAVULANATE POTASSIUM [Suspect]
  2. PARACETAMOL [Concomitant]

REACTIONS (9)
  - ENANTHEMA [None]
  - EPIDERMAL NECROSIS [None]
  - EPSTEIN-BARR VIRUS ANTIBODY POSITIVE [None]
  - ERYTHEMA MULTIFORME [None]
  - PYREXIA [None]
  - RASH MACULAR [None]
  - SKIN HYPERPIGMENTATION [None]
  - SKIN OEDEMA [None]
  - TYPE IV HYPERSENSITIVITY REACTION [None]
